FAERS Safety Report 17815689 (Version 1)
Quarter: 2020Q2

REPORT INFORMATION
  Report Type: Spontaneous
  Country: US (occurrence: US)
  Receive Date: 20200522
  Receipt Date: 20200522
  Transmission Date: 20200714
  Serious: No
  Sender: FDA-Public Use
  Company Number: US-TEVA-2020-US-1239020

PATIENT
  Sex: Female

DRUGS (1)
  1. BUPRENORPHINE TEVA [Suspect]
     Active Substance: BUPRENORPHINE
     Route: 062
     Dates: start: 2008

REACTIONS (3)
  - Rash [Unknown]
  - Product adhesion issue [Unknown]
  - Product substitution issue [Unknown]
